FAERS Safety Report 21594838 (Version 1)
Quarter: 2022Q4

REPORT INFORMATION
  Report Type: Spontaneous
  Country: US (occurrence: None)
  Receive Date: 20221114
  Receipt Date: 20221114
  Transmission Date: 20230113
  Serious: No
  Sender: FDA-Public Use
  Company Number: None

PATIENT
  Age: 41 Year
  Sex: Female
  Weight: 78.75 kg

DRUGS (3)
  1. PAXLOVID [Suspect]
     Active Substance: NIRMATRELVIR\RITONAVIR
     Indication: COVID-19
     Route: 048
     Dates: start: 20221031, end: 20221104
  2. METHOTREXATE [Concomitant]
     Active Substance: METHOTREXATE
  3. CHLOROQUINE [Concomitant]
     Active Substance: CHLOROQUINE

REACTIONS (4)
  - COVID-19 [None]
  - Illness [None]
  - SARS-CoV-2 test positive [None]
  - Sinusitis [None]

NARRATIVE: CASE EVENT DATE: 20221111
